FAERS Safety Report 7867179-0 (Version None)
Quarter: 2011Q4

REPORT INFORMATION
  Report Type: 
  Country: None (occurrence: None)
  Receive Date: 20111028
  Receipt Date: 20111021
  Transmission Date: 20120403
  Serious: Yes (Hospitalization)
  Sender: FDA-Public Use
  Company Number: US-GLAXOSMITHKLINE-A0941395A

PATIENT
  Age: 73 Year
  Sex: Female
  Weight: 85 kg

DRUGS (7)
  1. LISINOPRIL [Concomitant]
  2. PREDNISONE [Suspect]
     Indication: MULTIPLE MYELOMA
     Dosage: 100MG PER DAY
     Route: 048
     Dates: start: 20110418, end: 20110604
  3. NORCO [Concomitant]
  4. MELPHALAN HYDROCHLORIDE [Suspect]
     Indication: MULTIPLE MYELOMA
     Dosage: 16MG PER DAY
     Route: 048
     Dates: start: 20110418, end: 20110604
  5. SIMVASTATIN [Concomitant]
  6. CYMBALTA [Concomitant]
  7. VELCADE [Suspect]
     Indication: MULTIPLE MYELOMA
     Dosage: 2.4MG TWO TIMES PER WEEK
     Route: 042
     Dates: start: 20110418, end: 20110624

REACTIONS (8)
  - OEDEMA PERIPHERAL [None]
  - EXOSTOSIS [None]
  - FALL [None]
  - TROPONIN INCREASED [None]
  - THROMBOCYTOPENIA [None]
  - FIBULA FRACTURE [None]
  - ARTHRALGIA [None]
  - HERPES ZOSTER [None]
